FAERS Safety Report 25542351 (Version 1)
Quarter: 2025Q3

REPORT INFORMATION
  Report Type: Spontaneous
  Country: EU (occurrence: EU)
  Receive Date: 20250711
  Receipt Date: 20250711
  Transmission Date: 20251020
  Serious: Yes (Disabling)
  Sender: ROCHE
  Company Number: EU-ROCHE-10000335313

PATIENT
  Sex: Female

DRUGS (2)
  1. TECENTRIQ [Suspect]
     Active Substance: ATEZOLIZUMAB
     Indication: Small cell lung cancer
     Route: 042
  2. TECENTRIQ [Suspect]
     Active Substance: ATEZOLIZUMAB
     Route: 058

REACTIONS (1)
  - Mobility decreased [Unknown]
